FAERS Safety Report 8529597-7 (Version None)
Quarter: 2012Q3

REPORT INFORMATION
  Report Type: 
  Country: None (occurrence: None)
  Receive Date: 20120723
  Receipt Date: 20120711
  Transmission Date: 20120928
  Serious: Yes (Other)
  Sender: FDA-Public Use
  Company Number: CN-JNJFOC-20120709582

PATIENT

DRUGS (2)
  1. RISPERIDONE [Suspect]
     Indication: SCHIZOPHRENIA
     Dosage: 2-6 MG X D -1
     Route: 048
  2. RISPERIDONE [Suspect]
     Dosage: 2 MG X D -1
     Route: 048

REACTIONS (18)
  - VISION BLURRED [None]
  - INSOMNIA [None]
  - LIVER FUNCTION TEST ABNORMAL [None]
  - TREMOR [None]
  - DIZZINESS [None]
  - AKATHISIA [None]
  - NAUSEA [None]
  - VOMITING [None]
  - WEIGHT INCREASED [None]
  - ANXIETY [None]
  - GALACTORRHOEA [None]
  - TACHYCARDIA [None]
  - MENSTRUAL DISORDER [None]
  - AGITATION [None]
  - SOMNOLENCE [None]
  - MYOTONIA [None]
  - BLOOD GLUCOSE INCREASED [None]
  - HEADACHE [None]
